FAERS Safety Report 9890921 (Version 1)
Quarter: 2014Q1

REPORT INFORMATION
  Report Type: Spontaneous
  Country: BR (occurrence: None)
  Receive Date: 20140210
  Receipt Date: 20140210
  Transmission Date: 20141002
  Serious: Yes (Hospitalization, Other)
  Sender: FDA-Public Use
  Company Number: AUR-APL-2014-01319

PATIENT
  Age: 63 Year
  Sex: Male
  Weight: 67 kg

DRUGS (9)
  1. ATENOLOL (ATENOLOL) [Suspect]
     Indication: HYPERTENSION
     Dosage: 50 MG (50 MG, 1 IN 1 D), ORAL
     Route: 048
  2. OMEPRAZOLE (OMEPRAZOLE) [Suspect]
     Indication: GASTRITIS EROSIVE
     Dosage: 20 MG (20 MG, 1 IN 1 D), ORAL
     Route: 048
  3. CRESTOR (ROSUVASTATIN CALCIUM) [Suspect]
     Indication: BLOOD CHOLESTEROL INCREASED
     Route: 048
     Dates: start: 2013, end: 201401
  4. MONOCORDIL (ISOSORBIDE MONONITRATE) [Concomitant]
  5. CITALOPRAM (CITALOPRAM) [Concomitant]
  6. ASPIRINA (ACETYLSALICYLIC ACID) [Concomitant]
  7. ALOPURINOL ^BELUPO^ (ALLOPURINOL) [Concomitant]
  8. GLIFAGE (METFORMIN) [Concomitant]
  9. METFORMIN (METFORMIN) [Concomitant]

REACTIONS (3)
  - Coronary artery occlusion [None]
  - Blood cholesterol increased [None]
  - Myocardial infarction [None]
